FAERS Safety Report 6999122-0 (Version None)
Quarter: 2010Q3

REPORT INFORMATION
  Report Type: 
  Country: None (occurrence: None)
  Receive Date: 20100920
  Receipt Date: 20100610
  Transmission Date: 20110219
  Serious: Yes (Hospitalization, Disabling, Other)
  Sender: FDA-Public Use
  Company Number: US-ASTRAZENECA-2008UW21959

PATIENT
  Age: 53 Year
  Sex: Male
  Weight: 78 kg

DRUGS (8)
  1. SEROQUEL [Suspect]
     Indication: SLEEP DISORDER
     Route: 048
     Dates: start: 20080605, end: 20080606
  2. ATIVAN [Concomitant]
     Dosage: A FEW TIMES A DAY
  3. KAVA KAVA [Concomitant]
  4. MELOTONIN [Concomitant]
  5. MAGNESIUM [Concomitant]
  6. EFFEXOR XR [Concomitant]
  7. EFFEXOR XR [Concomitant]
  8. BUSPAR [Concomitant]

REACTIONS (14)
  - ABDOMINAL DISTENSION [None]
  - ABDOMINAL PAIN UPPER [None]
  - AGITATION [None]
  - AKATHISIA [None]
  - ANXIETY [None]
  - BLISTER [None]
  - DISABILITY [None]
  - DISTURBANCE IN ATTENTION [None]
  - HYPOPNOEA [None]
  - ILL-DEFINED DISORDER [None]
  - IMPULSE-CONTROL DISORDER [None]
  - IRRITABILITY [None]
  - RESTLESSNESS [None]
  - SUICIDAL IDEATION [None]
